FAERS Safety Report 5618960-X (Version None)
Quarter: 2008Q1

REPORT INFORMATION
  Report Type: 
  Country: None (occurrence: None)
  Receive Date: 20080207
  Receipt Date: 20080130
  Transmission Date: 20080703
  Serious: Yes (Hospitalization, Other)
  Sender: FDA-Public Use
  Company Number: US-PFIZER INC-2007107382

PATIENT
  Sex: Female
  Weight: 79.4 kg

DRUGS (22)
  1. LYRICA [Interacting]
     Indication: ANKYLOSING SPONDYLITIS
     Route: 048
     Dates: start: 20071129, end: 20071214
  2. LYRICA [Interacting]
     Indication: FIBROMYALGIA
  3. XANAX [Interacting]
     Indication: SLEEP DISORDER
  4. AMBIEN [Interacting]
     Indication: SLEEP DISORDER
  5. NARCAN [Suspect]
     Indication: DRUG ABUSE
  6. ACIPHEX [Concomitant]
  7. ALLERX [Concomitant]
  8. ARAVA [Concomitant]
  9. BUSPAR [Concomitant]
  10. ALL OTHER THERAPEUTIC PRODUCTS [Concomitant]
  11. CYMBALTA [Concomitant]
  12. DITROPAN XL [Concomitant]
  13. ESTROGENS [Concomitant]
  14. FENTANYL [Concomitant]
  15. ALL OTHER THERAPEUTIC PRODUCTS [Concomitant]
  16. LEVOTHYROXINE SODIUM [Concomitant]
  17. PERIACTIN [Concomitant]
  18. TOPAMAX [Concomitant]
  19. TOPROL-XL [Concomitant]
  20. TRAZODONE HCL [Concomitant]
  21. VERAMYST [Concomitant]
  22. WELLBUTRIN SR [Concomitant]

REACTIONS (14)
  - AMNESIA [None]
  - BLOOD CREATININE INCREASED [None]
  - COMA [None]
  - CONFUSIONAL STATE [None]
  - CONTUSION [None]
  - DRUG INTERACTION [None]
  - DRUG TOXICITY [None]
  - DYSSTASIA [None]
  - MYALGIA [None]
  - OEDEMA PERIPHERAL [None]
  - PYREXIA [None]
  - SPEECH DISORDER [None]
  - UNEVALUABLE EVENT [None]
  - WEIGHT INCREASED [None]
